FAERS Safety Report 5973860-0 (Version None)
Quarter: 2008Q4

REPORT INFORMATION
  Report Type: 
  Country: None (occurrence: None)
  Receive Date: 20081201
  Receipt Date: 20080129
  Transmission Date: 20090506
  Serious: Yes (Hospitalization)
  Sender: FDA-Public Use
  Company Number: US-AMGEN-QUU248720

PATIENT
  Sex: Female

DRUGS (2)
  1. ENBREL [Suspect]
     Indication: RHEUMATOID ARTHRITIS
     Route: 058
     Dates: start: 20050716, end: 20071015
  2. PREDNISONE TAB [Concomitant]

REACTIONS (2)
  - B-CELL LYMPHOMA [None]
  - GASTROINTESTINAL HAEMORRHAGE [None]
